FAERS Safety Report 6372350-3 (Version None)
Quarter: 2009Q3

REPORT INFORMATION
  Report Type: 
  Country: None (occurrence: None)
  Receive Date: 20090924
  Receipt Date: 20081010
  Transmission Date: 20100115
  Serious: No
  Sender: FDA-Public Use
  Company Number: US-ASTRAZENECA-2008UW22323

PATIENT
  Age: 49 Year
  Sex: Male

DRUGS (6)
  1. SEROQUEL [Suspect]
     Route: 048
  2. SEROQUEL [Suspect]
     Route: 048
  3. CYMBALTA [Concomitant]
     Dosage: 60 MG
  4. AMBIEN CR [Concomitant]
     Dosage: 12.5 MG
  5. FLEXERIL [Concomitant]
     Dosage: 10 MG AS NEEDED
  6. HYDROCODONE [Concomitant]

REACTIONS (1)
  - PERIPHERAL COLDNESS [None]
